FAERS Safety Report 11444654 (Version 1)
Quarter: 2015Q3

REPORT INFORMATION
  Report Type: Spontaneous
  Country: US (occurrence: None)
  Receive Date: 20150901
  Receipt Date: 20150901
  Transmission Date: 20151125
  Serious: No
  Sender: FDA-Public Use
  Company Number: None

PATIENT
  Age: 69 Year
  Sex: Female
  Weight: 73 kg

DRUGS (1)
  1. CISPLATIN. [Suspect]
     Active Substance: CISPLATIN
     Dosage: 210 M?EACH DOSE CYCLE 1-3 WAS 70 MG
     Dates: end: 20150812

REACTIONS (3)
  - Lymphocyte count decreased [None]
  - Platelet count abnormal [None]
  - Neutrophil count abnormal [None]

NARRATIVE: CASE EVENT DATE: 20150819
